FAERS Safety Report 18846349 (Version 1)
Quarter: 2021Q1

REPORT INFORMATION
  Report Type: Report from Study
  Country: None (occurrence: BR)
  Receive Date: 20210203
  Receipt Date: 20210203
  Transmission Date: 20210419
  Serious: Yes (Other)
  Sender: FDA-Public Use
  Company Number: BR-ABBVIE-21P-020-3757188-00

PATIENT
  Sex: Female
  Weight: 55 kg

DRUGS (4)
  1. LORATADINE. [Concomitant]
     Active Substance: LORATADINE
     Indication: HYPERSENSITIVITY
     Dosage: DOSE USED IF CRISIS IS INTENSE
  2. DEPAKENE [Suspect]
     Active Substance: VALPROIC ACID
     Indication: EPILEPSY
     Dosage: DD 250 MILLIGRAM, ADMINISTERED AT NIGHT, BEFORE SLEEPING; CHANGED TO DEPAKENE 500MG
     Route: 048
     Dates: start: 2017
  3. LORATADINE. [Concomitant]
     Active Substance: LORATADINE
     Dosage: TREATMENT STARTED WHEN PATIENT WAS 1 YEAR OLD (INITIAL DOSE WAS NOT PROVIDED)
     Route: 048
  4. LORATADINE. [Concomitant]
     Active Substance: LORATADINE
     Dosage: DAILY DOSE 1 TABLET, DOSE USED IF CRISIS IS MILD
     Route: 048

REACTIONS (9)
  - Swelling [Recovered/Resolved]
  - Mouth swelling [Recovered/Resolved]
  - Throat tightness [Recovered/Resolved]
  - Skin plaque [Recovered/Resolved]
  - Hypersensitivity [Recovered/Resolved]
  - Dyspnoea [Recovered/Resolved]
  - Eye swelling [Recovered/Resolved]
  - Abdominal distension [Recovered/Resolved]
  - Malaise [Recovered/Resolved]
